FAERS Safety Report 7457047-0 (Version None)
Quarter: 2011Q2

REPORT INFORMATION
  Report Type: 
  Country: None (occurrence: None)
  Receive Date: 20110426
  Receipt Date: 20110415
  Transmission Date: 20111010
  Serious: Yes (Hospitalization)
  Sender: FDA-Public Use
  Company Number: 113655-1

PATIENT
  Age: 51 Year
  Sex: Male
  Weight: 95 kg

DRUGS (39)
  1. RADIATION (RADIATION) [Suspect]
     Indication: NON-SMALL CELL LUNG CANCER
     Dosage: 66 GRAYX33 FRACTIONS; INTRAVENOUS
     Route: 042
     Dates: start: 20110124, end: 20110224
  2. CYMBALTA [Concomitant]
  3. FUROSEMIDE [Concomitant]
  4. INDERAL [Concomitant]
  5. LYRICA (REGABALIN) [Concomitant]
  6. PERFOROMIST [Concomitant]
  7. SEROQUEL [Concomitant]
  8. METAXALONE [Concomitant]
  9. POTASSIUM CHLORIDE [Concomitant]
  10. PROCHLORPERAZINE MALEATE [Concomitant]
  11. SINGULAIR [Concomitant]
  12. OXYGEN [Concomitant]
  13. CARBOPLATIN [Suspect]
     Indication: NON-SMALL CELL LUNG CANCER
     Dosage: 275 MG, WEEKLY 1/W
     Dates: start: 20110221
  14. PACLITAXEL [Suspect]
     Indication: NON-SMALL CELL LUNG CANCER
     Dosage: 174 MG, WEEKLY 1/W;
     Dates: start: 20110221
  15. ALBUTEROL [Concomitant]
  16. ALPRAZOLAM [Concomitant]
  17. GLIPIZIDE [Concomitant]
  18. NORTRIPTYLINE HCL [Concomitant]
  19. OXYCONTIN [Concomitant]
  20. XALATAN [Concomitant]
  21. CISPLATIN [Suspect]
     Indication: NON-SMALL CELL LUNG CANCER
     Dosage: 112 MG, IV, DAY 1, DAY 8
     Route: 042
     Dates: start: 20110124, end: 20110131
  22. OXYCODONE HCL [Concomitant]
  23. PROTONIX [Concomitant]
  24. ZOCOR [Concomitant]
  25. DEXAMETHASONE [Concomitant]
  26. DEPAKOTE [Concomitant]
  27. TAMSULOSIN HCL [Concomitant]
  28. ETOPOSIDE [Suspect]
     Indication: NON-SMALL CELL LUNG CANCER
     Dosage: 112MG, IV DAYS 1-5
     Route: 042
     Dates: start: 20110124, end: 20110128
  29. LUNESTA [Concomitant]
  30. METFORMIN HCL [Concomitant]
  31. NITROSTAT [Concomitant]
  32. SERTRALINE HYDROCHLORIDE [Concomitant]
  33. LORATADINE [Concomitant]
  34. NICOTINE [Concomitant]
  35. BENADRYL (DIPHENHYDRAMINE HYDROCHLORIDE, PARACETAMOL, PSEUDOEPHEDRINE [Concomitant]
  36. DEXAMETHASONE [Concomitant]
  37. MILK OF MAGNESIA TAB [Concomitant]
  38. FAMOTIDINE [Concomitant]
  39. ALOXI [Concomitant]

REACTIONS (14)
  - TINNITUS [None]
  - FEELING JITTERY [None]
  - PNEUMONIA [None]
  - SEPSIS [None]
  - PANCYTOPENIA [None]
  - TACHYCARDIA [None]
  - FEBRILE NEUTROPENIA [None]
  - VOMITING [None]
  - HEADACHE [None]
  - EMPHYSEMA [None]
  - CONSTIPATION [None]
  - HYPOKALAEMIA [None]
  - RENAL FAILURE ACUTE [None]
  - HYPOTENSION [None]
